FAERS Safety Report 6871888-X (Version None)
Quarter: 2010Q3

REPORT INFORMATION
  Report Type: 
  Country: None (occurrence: None)
  Receive Date: 20100723
  Receipt Date: 20100719
  Transmission Date: 20110219
  Serious: Yes (Hospitalization)
  Sender: FDA-Public Use
  Company Number: FR-BRISTOL-MYERS SQUIBB COMPANY-15201874

PATIENT
  Age: 79 Year
  Sex: Male

DRUGS (6)
  1. PRAVIGARD PAC (COPACKAGED) [Suspect]
     Route: 048
     Dates: end: 20080526
  2. VALSARTAN AND HYDROCHLOROTHIAZIDE [Suspect]
     Indication: HYPERTENSION
     Route: 048
     Dates: end: 20080526
  3. TRANDOLAPRIL AND VERAPAMIL HYDROCHLORIDE [Suspect]
     Indication: HYPERTENSION
     Dates: start: 20080523, end: 20080526
  4. ACEBUTOLOL [Suspect]
     Dosage: ACEBUTOLOL RATIOPHARM 200 MG 1 DF: 1/2TABLET
     Dates: end: 20080526
  5. LORAZEPAM [Suspect]
     Indication: ANXIETY
     Dosage: TEMESTA 1 MG .1 DF: 1 TABLET IN THE EVENING
     Dates: start: 20080526
  6. AMLOR [Concomitant]
     Dates: end: 20080523

REACTIONS (2)
  - HYPERKALAEMIA [None]
  - RENAL FAILURE ACUTE [None]
